FAERS Safety Report 7133295-4 (Version None)
Quarter: 2010Q4

REPORT INFORMATION
  Report Type: 
  Country: None (occurrence: None)
  Receive Date: 20101117
  Receipt Date: 20101101
  Transmission Date: 20110411
  Serious: No
  Sender: FDA-Public Use
  Company Number: 2010-00982

PATIENT
  Age: 63 Year
  Sex: Female
  Weight: 108.8633 kg

DRUGS (11)
  1. ZICAM COLD REMEDY NASAL GEL [Suspect]
     Dosage: SPORADIC X 3 YEARS
     Dates: start: 20000101, end: 20030101
  2. METFORMIN [Concomitant]
  3. ATENOLOL [Concomitant]
  4. FLUOXETINE [Concomitant]
  5. NEXIUM [Concomitant]
  6. SIMVASTATIN [Concomitant]
  7. ASPIRIN [Concomitant]
  8. FISH OIL [Concomitant]
  9. CALCIUM W/ VITAMIN D [Concomitant]
  10. HYDROCHLOROTHIAZIDE [Concomitant]
  11. PRIMIDONE [Concomitant]

REACTIONS (3)
  - ANOSMIA [None]
  - DYSGEUSIA [None]
  - NASAL DISCOMFORT [None]
